FAERS Safety Report 9032613 (Version 1)
Quarter: 2013Q1

REPORT INFORMATION
  Report Type: Spontaneous
  Country: US (occurrence: None)
  Receive Date: 20130109
  Receipt Date: 20130109
  Transmission Date: 20140127
  Serious: Yes (Other)
  Sender: FDA-Public Use
  Company Number: 3005442893-2012-00002

PATIENT
  Sex: Female

DRUGS (14)
  1. ASTHMANEFRIN [Suspect]
     Indication: RESPIRATORY DISTRESS
     Dosage: 1 VIAL PRN 54
     Dates: start: 20120902, end: 20120904
  2. SPIRIVA HANDIHALER [Concomitant]
  3. SYMBICORT [Concomitant]
  4. COMBIVENT [Concomitant]
  5. ALBUTEROL/VENTOLIN INHALER [Concomitant]
  6. ASMANEX [Concomitant]
  7. TERBUTALINE [Concomitant]
  8. LISINOPRIL [Concomitant]
  9. METOPROLOL TARTRATE [Concomitant]
  10. PAXIL [Suspect]
  11. OMEPRAZOLE [Concomitant]
  12. VICODIN [Concomitant]
  13. IBUPROFEN [Concomitant]
  14. TYLENOL [Concomitant]

REACTIONS (5)
  - Haemoptysis [None]
  - Chest pain [None]
  - Nausea [None]
  - Dizziness [None]
  - Rash [None]
